FAERS Safety Report 11877901 (Version 1)
Quarter: 2015Q4

REPORT INFORMATION
  Report Type: Spontaneous
  Country: IN (occurrence: IN)
  Receive Date: 20151230
  Receipt Date: 20151230
  Transmission Date: 20160305
  Serious: Yes (Death, Other)
  Sender: FDA-Public Use
  Company Number: IN-CIPLA LTD.-2015IN10009

PATIENT

DRUGS (2)
  1. PACLITAXEL. [Suspect]
     Active Substance: PACLITAXEL
     Indication: OVARIAN CANCER
     Dosage: TOTAL CUMULATIVE DOSE 1200 MG FOR 6 CYCLES
  2. CARBOPLATIN. [Suspect]
     Active Substance: CARBOPLATIN
     Indication: OVARIAN CANCER
     Dosage: TOTAL CUMULATIVE DOSE 2700 MG FOR 6 CYCLES

REACTIONS (5)
  - Acute leukaemia [Not Recovered/Not Resolved]
  - Leukaemic infiltration pulmonary [Fatal]
  - Cardiac arrest [Fatal]
  - Myeloproliferative disorder [Not Recovered/Not Resolved]
  - Central nervous system leukaemia [Fatal]
